FAERS Safety Report 5749847-X (Version None)
Quarter: 2008Q2

REPORT INFORMATION
  Report Type: 
  Country: None (occurrence: None)
  Receive Date: 20080527
  Receipt Date: 20080520
  Transmission Date: 20081010
  Serious: Yes (Other)
  Sender: FDA-Public Use
  Company Number: US-ELI_LILLY_AND_COMPANY-US200804000404

PATIENT
  Sex: Male
  Weight: 109.39 kg

DRUGS (2)
  1. GEMZAR [Suspect]
     Indication: NON-SMALL CELL LUNG CANCER
     Dosage: UNK, WEEKLY FOR 3 WEEKS, OFF 1 WEEK
     Route: 042
     Dates: start: 20071019, end: 20080327
  2. DEXAMETHASONE TAB [Concomitant]

REACTIONS (5)
  - COUGH [None]
  - FALL [None]
  - HYPOTENSION [None]
  - PLATELET COUNT DECREASED [None]
  - RIB FRACTURE [None]
